FAERS Safety Report 18899670 (Version 2)
Quarter: 2021Q2

REPORT INFORMATION
  Report Type: Report from Study
  Country: US (occurrence: US)
  Receive Date: 20210216
  Receipt Date: 20210419
  Transmission Date: 20210717
  Serious: Yes (Death)
  Sender: FDA-Public Use
  Company Number: US-PFIZER INC-2020310625

PATIENT

DRUGS (2)
  1. RITUXIMAB. [Suspect]
     Active Substance: RITUXIMAB
     Indication: IMMUNODEFICIENCY COMMON VARIABLE
  2. RITUXIMAB. [Suspect]
     Active Substance: RITUXIMAB
     Indication: GRANULOMATOUS PNEUMONITIS
     Dosage: 375 MG/M2, FOR 4 WEEKS, REPEATED AT SIX?MONTH INTERVALS, FOR 3 OR 4 TOTAL COURSES

REACTIONS (1)
  - Sepsis [Fatal]
